FAERS Safety Report 7342928-9 (Version None)
Quarter: 2011Q1

REPORT INFORMATION
  Report Type: 
  Country: None (occurrence: None)
  Receive Date: 20110308
  Receipt Date: 20110308
  Transmission Date: 20110831
  Serious: No
  Sender: FDA-Public Use
  Company Number: None

PATIENT
  Age: 52 Year
  Sex: Male
  Weight: 91 kg

DRUGS (3)
  1. IMATINIB MESYLATE [Suspect]
     Indication: CHRONIC MYELOID LEUKAEMIA
     Dosage: 400 MG AM PO
     Route: 048
     Dates: start: 20110210, end: 20110227
  2. VANCOMYCIN [Suspect]
     Indication: PNEUMONIA STAPHYLOCOCCAL
     Dosage: 1750 MG BID IV
     Route: 042
     Dates: start: 20110202, end: 20110227
  3. VANCOMYCIN [Suspect]
     Indication: STAPHYLOCOCCAL SEPSIS
     Dosage: 1750 MG BID IV
     Route: 042
     Dates: start: 20110202, end: 20110227

REACTIONS (2)
  - NEPHRITIS [None]
  - RENAL FAILURE ACUTE [None]
